FAERS Safety Report 11304357 (Version 1)
Quarter: 2015Q3

REPORT INFORMATION
  Report Type: Spontaneous
  Country: US (occurrence: US)
  Receive Date: 20150723
  Receipt Date: 20150723
  Transmission Date: 20151125
  Serious: No
  Sender: FDA-Public Use
  Company Number: US-JNJFOC-20150420917

PATIENT
  Age: 12 Year
  Sex: Male

DRUGS (2)
  1. ZYRTEC [Suspect]
     Active Substance: CETIRIZINE HYDROCHLORIDE
     Route: 048
  2. ZYRTEC [Suspect]
     Active Substance: CETIRIZINE HYDROCHLORIDE
     Indication: PRODUCT USED FOR UNKNOWN INDICATION
     Dosage: 1 TABLET AT 7:40AM AND ACCIDENTALLY DOSE ANOTHER 2 TABLETS AT 3:30PM
     Route: 048
     Dates: start: 20150424

REACTIONS (2)
  - Medication error [Unknown]
  - Malaise [Unknown]

NARRATIVE: CASE EVENT DATE: 20150424
